FAERS Safety Report 6213883-X (Version None)
Quarter: 2009Q2

REPORT INFORMATION
  Report Type: 
  Country: None (occurrence: None)
  Receive Date: 20090602
  Receipt Date: 20090602
  Transmission Date: 20091009
  Serious: Yes (Disabling)
  Sender: FDA-Public Use
  Company Number: None

PATIENT
  Age: 29 Year
  Sex: Female
  Weight: 61.6892 kg

DRUGS (1)
  1. METRONIDAZOLE [Suspect]
     Indication: VAGINITIS BACTERIAL
     Dosage: 500MG FOR 10 DAYS 3 TIMES A DAY PO
     Route: 048
     Dates: start: 20090512, end: 20090521

REACTIONS (8)
  - ABDOMINAL DISCOMFORT [None]
  - DIARRHOEA [None]
  - DYSGEUSIA [None]
  - FEELING ABNORMAL [None]
  - HEADACHE [None]
  - HYPOAESTHESIA [None]
  - MALAISE [None]
  - VOMITING [None]
